FAERS Safety Report 23862142 (Version 1)
Quarter: 2024Q2

REPORT INFORMATION
  Report Type: Spontaneous
  Country: US (occurrence: None)
  Receive Date: 20240515
  Receipt Date: 20240515
  Transmission Date: 20240716
  Serious: Yes (Hospitalization)
  Sender: FDA-Public Use
  Company Number: None

PATIENT
  Age: 84 Year
  Sex: Female

DRUGS (1)
  1. LENALIDOMIDE [Suspect]
     Active Substance: LENALIDOMIDE
     Indication: Plasma cell myeloma in remission
     Dosage: FREQUENCY : AS DIRECTED;  DAILY FOR 21 DAYS ON AND 7 DAYS OFF?

REACTIONS (4)
  - Fall [None]
  - Skin laceration [None]
  - Postoperative wound infection [None]
  - Therapy non-responder [None]
